FAERS Safety Report 9052516 (Version 1)
Quarter: 2013Q1

REPORT INFORMATION
  Report Type: Spontaneous
  Country: US (occurrence: US)
  Receive Date: 20130207
  Receipt Date: 20130207
  Transmission Date: 20140127
  Serious: Yes (Other)
  Sender: FDA-Public Use
  Company Number: PHEH2013US002100

PATIENT
  Sex: Female

DRUGS (1)
  1. RECLAST [Suspect]
     Indication: BONE DISORDER
     Dosage: 5 MG, UNK
     Route: 042

REACTIONS (2)
  - Chronic obstructive pulmonary disease [Unknown]
  - Renal failure [Unknown]
